FAERS Safety Report 15976939 (Version 1)
Quarter: 2019Q1

REPORT INFORMATION
  Report Type: Spontaneous
  Country: ES (occurrence: ES)
  Receive Date: 20190218
  Receipt Date: 20190218
  Transmission Date: 20190418
  Serious: Yes (Death, Hospitalization, Other)
  Sender: FDA-Public Use
  Company Number: ES-MYLANLABS-2019M1013307

PATIENT
  Age: 61 Year
  Sex: Female

DRUGS (1)
  1. CANDESARTAN. [Suspect]
     Active Substance: CANDESARTAN
     Indication: PRODUCT USED FOR UNKNOWN INDICATION
     Dosage: UNK
     Route: 065

REACTIONS (9)
  - Hepatotoxicity [Unknown]
  - Facial paralysis [Unknown]
  - Left atrial dilatation [Unknown]
  - Cardiac failure [Unknown]
  - Hemiparesis [Unknown]
  - Haemodynamic instability [Unknown]
  - Ventricular fibrillation [Fatal]
  - Haematemesis [Unknown]
  - Atrial fibrillation [Unknown]
